FAERS Safety Report 4593983-0 (Version None)
Quarter: 2005Q1

REPORT INFORMATION
  Report Type: 
  Country: None (occurrence: None)
  Receive Date: 20050218
  Receipt Date: 20050208
  Transmission Date: 20050727
  Serious: Yes (Hospitalization)
  Sender: FDA-Public Use
  Company Number: ZONI002106

PATIENT
  Age: 39 Year
  Sex: Male

DRUGS (1)
  1. EXCEGRAN (ZONISAMIDE) [Suspect]
     Indication: CONVULSION
     Dosage: 400 MG, 2 IN 1 D, ORAL
     Route: 048
     Dates: start: 20050119, end: 20050202

REACTIONS (6)
  - ERYTHEMA [None]
  - HEADACHE [None]
  - HYPERSENSITIVITY [None]
  - LYMPHADENOPATHY [None]
  - PYREXIA [None]
  - RASH [None]
